FAERS Safety Report 10191187 (Version 1)
Quarter: 2014Q2

REPORT INFORMATION
  Report Type: Spontaneous
  Country: GB (occurrence: GB)
  Receive Date: 20140523
  Receipt Date: 20140523
  Transmission Date: 20141212
  Serious: Yes (Hospitalization, Other)
  Sender: FDA-Public Use
  Company Number: GB-ACCORD-023804

PATIENT
  Sex: Female
  Weight: 70 kg

DRUGS (6)
  1. CODEINE PHOSPHATE/PARACETAMOL [Concomitant]
     Dosage: 8/500
  2. FLUOROURACIL [Suspect]
     Indication: CHEMOTHERAPY
  3. MOVICOL [Concomitant]
  4. CAPECITABINE [Suspect]
     Indication: CHEMOTHERAPY
  5. LANSOPRAZOLE [Concomitant]
     Route: 048
  6. ATORVASTATIN [Concomitant]
     Route: 048

REACTIONS (2)
  - Atrial fibrillation [Recovered/Resolved]
  - Chest pain [Recovered/Resolved]
